FAERS Safety Report 7633174-X (Version None)
Quarter: 2011Q3

REPORT INFORMATION
  Report Type: 
  Country: None (occurrence: None)
  Receive Date: 20110725
  Receipt Date: 20110718
  Transmission Date: 20111222
  Serious: Yes (Hospitalization, Other)
  Sender: FDA-Public Use
  Company Number: FR-PFIZER INC-2011161710

PATIENT
  Age: 65 Year
  Sex: Male

DRUGS (16)
  1. DEPO-MEDROL [Suspect]
     Dosage: 40 MG, UNK
     Route: 037
     Dates: start: 20110514, end: 20110601
  2. BISOPROLOL FUMARATE [Concomitant]
     Dosage: UNK
  3. LEDERFOLIN [Concomitant]
     Dosage: UNK
  4. METHOTREXATE [Suspect]
     Dosage: 15 MG, UNK
     Route: 037
     Dates: start: 20110514, end: 20110601
  5. VINCRISTINE SULFATE [Concomitant]
     Dosage: 1 MG, UNK
     Route: 042
     Dates: start: 20110520, end: 20110527
  6. BIPRETERAX [Concomitant]
     Dosage: UNK
  7. CYTARABINE [Suspect]
     Dosage: 40 MG, UNK
     Route: 037
     Dates: start: 20110514, end: 20110601
  8. GRANOCYTE [Concomitant]
     Dosage: UNK
     Dates: start: 20110601, end: 20110614
  9. ROCEPHIN [Concomitant]
     Dosage: UNK
     Dates: start: 20110602, end: 20110613
  10. VALACYCLOVIR HYDROCHLORIDE [Concomitant]
     Dosage: UNK
  11. DEXAMETHASONE [Concomitant]
     Dosage: UNK
     Route: 048
     Dates: start: 20110514, end: 20110521
  12. LOVENOX [Concomitant]
     Dosage: UNK
  13. BACTRIM [Concomitant]
     Dosage: UNK
  14. IDARUBICIN HYDROCHLORIDE [Concomitant]
     Dosage: 10 MG, UNK
     Route: 042
     Dates: start: 20110520, end: 20110528
  15. GENTAMICIN [Concomitant]
     Dosage: UNK
     Route: 065
     Dates: start: 20110602, end: 20110606
  16. ALFUZOSIN [Concomitant]
     Dosage: UNK

REACTIONS (5)
  - ENCEPHALITIS [None]
  - CONFUSIONAL STATE [None]
  - MENINGITIS ASEPTIC [None]
  - APLASIA [None]
  - MYOCLONUS [None]
